FAERS Safety Report 20507153 (Version 2)
Quarter: 2022Q4

REPORT INFORMATION
  Report Type: Spontaneous
  Country: US (occurrence: US)
  Receive Date: 20220223
  Receipt Date: 20221221
  Transmission Date: 20230113
  Serious: No
  Sender: FDA-Public Use
  Company Number: US-PFIZER INC-202101656397

PATIENT
  Age: 64 Year
  Sex: Female

DRUGS (1)
  1. XELJANZ XR [Suspect]
     Active Substance: TOFACITINIB CITRATE
     Indication: Rheumatoid arthritis
     Dosage: 11 MG

REACTIONS (6)
  - Arthralgia [Unknown]
  - Back pain [Unknown]
  - Rash [Unknown]
  - Hypoaesthesia [Unknown]
  - Joint stiffness [Unknown]
  - Musculoskeletal stiffness [Unknown]
